FAERS Safety Report 19032610 (Version 1)
Quarter: 2021Q1

REPORT INFORMATION
  Report Type: Spontaneous
  Country: US (occurrence: US)
  Receive Date: 20210319
  Receipt Date: 20210319
  Transmission Date: 20210420
  Serious: No
  Sender: FDA-Public Use
  Company Number: US-009507513-2102USA007861

PATIENT
  Age: 71 Year
  Sex: Female

DRUGS (2)
  1. ALBUTEROL SULFATE. [Suspect]
     Active Substance: ALBUTEROL SULFATE
     Indication: ASTHMA
     Dosage: 2 PUFFS EVERY 4 HOURS AS REQUIRED
     Route: 055
     Dates: start: 20210212
  2. IBUPROFEN. [Concomitant]
     Active Substance: IBUPROFEN
     Dosage: WHEN SHE NEEDS

REACTIONS (3)
  - Poor quality device used [Unknown]
  - Product delivery mechanism issue [Unknown]
  - Product design issue [Unknown]

NARRATIVE: CASE EVENT DATE: 20210212
